FAERS Safety Report 4632240-0 (Version None)
Quarter: 2005Q2

REPORT INFORMATION
  Report Type: 
  Country: None (occurrence: None)
  Receive Date: 20050411
  Receipt Date: 20050126
  Transmission Date: 20051028
  Serious: Yes (Hospitalization)
  Sender: FDA-Public Use
  Company Number: BE-ROCHE-393651

PATIENT
  Age: 48 Year
  Sex: Male
  Weight: 70 kg

DRUGS (8)
  1. PEG-INTRON [Suspect]
     Route: 058
     Dates: start: 20041222, end: 20050121
  2. RIBAVIRIN [Suspect]
     Route: 048
     Dates: start: 20041222, end: 20050121
  3. DIAZEPAM [Concomitant]
     Dates: start: 20040413, end: 20050121
  4. PAROXETINE HCL [Concomitant]
     Dates: start: 20031230
  5. TRAZODONE HYDROCHLORIDE [Concomitant]
     Dates: start: 20040824
  6. LEVOCETIRIZINE [Concomitant]
     Dates: start: 20050104, end: 20050121
  7. UNSPECIFIED DRUG [Concomitant]
     Dosage: DRUG NAME REPORTED AS TENO-CORTNID.
     Dates: start: 20050104, end: 20050121
  8. UNSPECIFIED DRUG [Concomitant]
     Dosage: DRUG NAME REPORTED AS MENTLIOL ENIME.
     Dates: start: 20050117, end: 20050121

REACTIONS (4)
  - DIPLOPIA [None]
  - EYE SWELLING [None]
  - MYASTHENIA GRAVIS [None]
  - VITH NERVE PARALYSIS [None]
